FAERS Safety Report 18001336 (Version 9)
Quarter: 2021Q4

REPORT INFORMATION
  Report Type: Report from Study
  Country: CA (occurrence: CA)
  Receive Date: 20200709
  Receipt Date: 20211119
  Transmission Date: 20220303
  Serious: Yes (Hospitalization, Other)
  Sender: FDA-Public Use
  Company Number: PHHY2019CA082527

PATIENT
  Age: 12 Year
  Sex: Female
  Weight: 56.3 kg

DRUGS (16)
  1. TRAMETINIB [Suspect]
     Active Substance: TRAMETINIB
     Indication: Neurofibroma
     Dosage: 1.5 MG, QD
     Route: 048
     Dates: start: 20190315
  2. TRAMETINIB [Suspect]
     Active Substance: TRAMETINIB
     Dosage: 0.75 MG, QD
     Route: 048
     Dates: start: 20190318, end: 20190717
  3. TRAMETINIB [Suspect]
     Active Substance: TRAMETINIB
     Dosage: 1.25 MG, QD
     Route: 048
  4. TRAMETINIB [Suspect]
     Active Substance: TRAMETINIB
     Dosage: 1.5 MG, QD
     Route: 048
     Dates: start: 20190919
  5. TRAMETINIB [Suspect]
     Active Substance: TRAMETINIB
     Dosage: 1.5 MG, QD
     Route: 048
     Dates: start: 20190926
  6. TRAMETINIB [Suspect]
     Active Substance: TRAMETINIB
     Dosage: 1.25 MG, QD
     Route: 048
     Dates: start: 20191002
  7. TRAMETINIB [Suspect]
     Active Substance: TRAMETINIB
     Dosage: 1.25 MG, QD
     Route: 048
     Dates: start: 20191121, end: 20191122
  8. TRAMETINIB [Suspect]
     Active Substance: TRAMETINIB
     Dosage: 0.75 MG, QD
     Route: 048
     Dates: start: 20190318, end: 20200323
  9. TRAMETINIB [Suspect]
     Active Substance: TRAMETINIB
     Dosage: 0.75 MG, QD
     Route: 048
     Dates: start: 20200416
  10. TRAMETINIB [Suspect]
     Active Substance: TRAMETINIB
     Dosage: 1 MG, QD
     Route: 048
     Dates: start: 20200521, end: 20200610
  11. TRAMETINIB [Suspect]
     Active Substance: TRAMETINIB
     Dosage: 0.5 MG
     Route: 048
     Dates: start: 20200702
  12. TRAMETINIB [Suspect]
     Active Substance: TRAMETINIB
     Dosage: 0.75 MG, QD
     Route: 048
     Dates: start: 20200318, end: 20201119
  13. TRAMETINIB [Suspect]
     Active Substance: TRAMETINIB
     Dosage: UNK
     Route: 048
     Dates: start: 20201125
  14. TRAMETINIB [Suspect]
     Active Substance: TRAMETINIB
     Dosage: 0.75 MG, QD
     Route: 048
     Dates: start: 20190318, end: 20210725
  15. TRAMETINIB [Suspect]
     Active Substance: TRAMETINIB
     Dosage: 0.75 MG, QD(FROM 18 MAR 2019 TO 12 OCT 2021)
     Route: 048
     Dates: start: 20210812, end: 20211012
  16. AMITRIPTYLINE [Concomitant]
     Active Substance: AMITRIPTYLINE
     Indication: Neuralgia
     Dosage: 10 MG, QD
     Route: 048

REACTIONS (23)
  - Constipation [Recovered/Resolved]
  - Cellulitis [Recovered/Resolved]
  - Paronychia [Recovered/Resolved]
  - Aphthous ulcer [Recovered/Resolved]
  - Acne [Recovered/Resolved]
  - Pain in extremity [Recovered/Resolved]
  - Dermatitis acneiform [Not Recovered/Not Resolved]
  - Rash pruritic [Unknown]
  - Erythema [Unknown]
  - Tenderness [Unknown]
  - Oedema peripheral [Recovered/Resolved]
  - Oedema peripheral [Recovered/Resolved]
  - Paronychia [Recovered/Resolved]
  - Rash [Not Recovered/Not Resolved]
  - Pyrexia [Recovered/Resolved]
  - Hyperkeratosis [Unknown]
  - White blood cell count increased [Unknown]
  - Gait disturbance [Unknown]
  - Epistaxis [Recovered/Resolved]
  - Swelling [Not Recovered/Not Resolved]
  - Pain [Not Recovered/Not Resolved]
  - Lymphatic obstruction [Unknown]
  - Oedema peripheral [Recovering/Resolving]

NARRATIVE: CASE EVENT DATE: 20190320
